FAERS Safety Report 4548510-0 (Version None)
Quarter: 2005Q1

REPORT INFORMATION
  Report Type: 
  Country: None (occurrence: None)
  Receive Date: 20050110
  Receipt Date: 20050104
  Transmission Date: 20050727
  Serious: Yes (Congenital Anomaly)
  Sender: FDA-Public Use
  Company Number: GB-GLAXOSMITHKLINE-B0363327B

PATIENT

DRUGS (3)
  1. AVANDIA [Suspect]
  2. GLICLAZIDE [Suspect]
  3. FOLIC ACID [Concomitant]
     Dosage: 5MG PER DAY

REACTIONS (5)
  - CEREBRAL VENTRICLE DILATATION [None]
  - CONGENITAL ANOMALY [None]
  - DRUG EXPOSURE DURING PREGNANCY [None]
  - HEART DISEASE CONGENITAL [None]
  - NEURAL TUBE DEFECT [None]
